FAERS Safety Report 8909167 (Version 1)
Quarter: 2012Q4

REPORT INFORMATION
  Report Type: Spontaneous
  Country: US (occurrence: None)
  Receive Date: 20121113
  Receipt Date: 20121113
  Transmission Date: 20130627
  Serious: No
  Sender: FDA-Public Use
  Company Number: None

PATIENT
  Age: 70 Year
  Sex: Female

DRUGS (2)
  1. ATORVASTATIN [Suspect]
     Dates: end: 20110802
  2. NIACIN [Suspect]
     Dates: end: 20110802

REACTIONS (3)
  - Drug-induced liver injury [None]
  - Hepatitis [None]
  - Hepatic fibrosis [None]
